FAERS Safety Report 13690321 (Version 1)
Quarter: 2017Q2

REPORT INFORMATION
  Report Type: Report from Study
  Country: US (occurrence: US)
  Receive Date: 20170626
  Receipt Date: 20170626
  Transmission Date: 20170830
  Serious: Yes (Hospitalization)
  Sender: FDA-Public Use
  Company Number: US-PFIZER INC-2017263233

PATIENT
  Age: 66 Year
  Sex: Male
  Weight: 95 kg

DRUGS (21)
  1. VENETOCLAX [Suspect]
     Active Substance: VENETOCLAX
     Dosage: 400 MG, UNK
     Route: 048
     Dates: start: 20170217, end: 20170217
  2. VENETOCLAX [Suspect]
     Active Substance: VENETOCLAX
     Dosage: 600 MG, UNK
     Route: 048
     Dates: start: 20170218
  3. VITAMIN D /00107901/ [Concomitant]
     Active Substance: ERGOCALCIFEROL
     Indication: VITAMIN SUPPLEMENTATION
     Dosage: 1 IN 1 D
     Route: 048
     Dates: start: 201511
  4. PEPCID [Concomitant]
     Active Substance: FAMOTIDINE
     Indication: GASTROOESOPHAGEAL REFLUX DISEASE
     Dosage: 20 MG, 2 IN 1 D
     Route: 048
     Dates: start: 20170210
  5. CYTARABINE. [Suspect]
     Active Substance: CYTARABINE
     Indication: ACUTE MYELOID LEUKAEMIA
     Dosage: 20 MG/M2, 1 IN 1 D, DAYS 1- 10 OF EACH 28 DAY CYCLE, LAST DOSE GIVEN WAS 20FEB2017
     Route: 058
     Dates: start: 20170215
  6. VENETOCLAX [Suspect]
     Active Substance: VENETOCLAX
     Dosage: 200 MG, UNK
     Route: 048
     Dates: start: 20170216, end: 20170216
  7. OXYCODONE [Concomitant]
     Active Substance: OXYCODONE
     Indication: FLANK PAIN
     Dosage: 5-7.5 MG, AS REQUIRED
     Route: 048
     Dates: start: 20170215
  8. NEURONTIN [Concomitant]
     Active Substance: GABAPENTIN
     Indication: TREMOR
     Dosage: 600 MG, 3 IN 1 D
     Route: 048
     Dates: start: 201512
  9. LISPRO [Concomitant]
     Active Substance: INSULIN LISPRO
     Indication: TYPE 2 DIABETES MELLITUS
     Dosage: SLIDING SCALE (20 IU)
     Route: 058
     Dates: start: 201511
  10. SENNA /00142201/ [Concomitant]
     Active Substance: SENNA LEAF
     Indication: PROPHYLAXIS
  11. METOPROLOL XL [Concomitant]
     Active Substance: METOPROLOL SUCCINATE
     Indication: HYPERTENSION
     Dosage: 25 MG, 1 IN 1 D
     Route: 048
  12. FLOMAX [Concomitant]
     Active Substance: TAMSULOSIN HYDROCHLORIDE
     Indication: STENT PLACEMENT
     Dosage: 0.4 MG, 1 IN 1 D
     Route: 048
     Dates: start: 20170212
  13. SENNA /00142201/ [Concomitant]
     Active Substance: SENNA LEAF
     Indication: FAECES SOFT
     Dosage: 1 TABLET , 1 IN 1 D
     Route: 048
     Dates: start: 20170210
  14. LEVAQUIN [Concomitant]
     Active Substance: LEVOFLOXACIN
     Indication: ANTIBIOTIC PROPHYLAXIS
     Dosage: 500 MG, 1 IN 1 D
     Route: 048
     Dates: start: 20170220
  15. PEPCID [Concomitant]
     Active Substance: FAMOTIDINE
     Indication: PROPHYLAXIS
  16. LANTUS [Concomitant]
     Active Substance: INSULIN GLARGINE
     Indication: TYPE 2 DIABETES MELLITUS
     Dosage: 20 IU, 1 IN 1 D
     Route: 058
     Dates: start: 201511
  17. ACYCLOVIR /00587301/ [Concomitant]
     Active Substance: ACYCLOVIR
     Indication: INFECTION PROPHYLAXIS
     Dosage: 400 MG, 3 IN 1 D
     Route: 048
     Dates: start: 20170210
  18. VENETOCLAX [Suspect]
     Active Substance: VENETOCLAX
     Indication: ACUTE MYELOID LEUKAEMIA
     Dosage: 100 MG, UNK
     Route: 048
     Dates: start: 20170215, end: 20170215
  19. FLOMAX [Concomitant]
     Active Substance: TAMSULOSIN HYDROCHLORIDE
     Indication: PROPHYLAXIS
  20. LIPITOR [Concomitant]
     Active Substance: ATORVASTATIN CALCIUM
     Indication: HYPERLIPIDAEMIA
     Dosage: 40 MG, 1 IN 1 D
     Route: 048
     Dates: start: 201511
  21. CYMBALTA [Concomitant]
     Active Substance: DULOXETINE HYDROCHLORIDE
     Indication: DEPRESSION
     Dosage: 60 MG, 1 IN 1 D
     Route: 048
     Dates: start: 201612

REACTIONS (1)
  - Haematuria [Recovered/Resolved]

NARRATIVE: CASE EVENT DATE: 20170302
